FAERS Safety Report 5921005-5 (Version None)
Quarter: 2008Q4

REPORT INFORMATION
  Report Type: 
  Country: None (occurrence: None)
  Receive Date: 20081016
  Receipt Date: 20081015
  Transmission Date: 20090506
  Serious: Yes (Hospitalization)
  Sender: FDA-Public Use
  Company Number: BE-WYE-G02365908

PATIENT

DRUGS (1)
  1. TYGACIL [Suspect]

REACTIONS (1)
  - ENCEPHALOPATHY [None]
